FAERS Safety Report 19774742 (Version 2)
Quarter: 2021Q3

REPORT INFORMATION
  Report Type: Spontaneous
  Country: US (occurrence: US)
  Receive Date: 20210901
  Receipt Date: 20210921
  Transmission Date: 20211014
  Serious: No
  Sender: FDA-Public Use
  Company Number: US-LUPIN PHARMACEUTICALS INC.-2021-15873

PATIENT
  Sex: Male

DRUGS (2)
  1. LOSARTAN POTASSIUM AND HYDROCHLOROTHIAZIDE TABLET USP 50 MG/12.5 MG [Suspect]
     Active Substance: HYDROCHLOROTHIAZIDE\LOSARTAN POTASSIUM
     Dosage: 1 DOSAGE FORM, QD (1 TABLET DAILY)
     Route: 065
  2. LOSARTAN POTASSIUM AND HYDROCHLOROTHIAZIDE TABLET USP 50 MG/12.5 MG [Suspect]
     Active Substance: HYDROCHLOROTHIAZIDE\LOSARTAN POTASSIUM
     Indication: HYPERTENSION
     Dosage: UNK (SINCE 3 TO 4 YEARS)
     Route: 065

REACTIONS (5)
  - Product colour issue [Unknown]
  - Product packaging issue [Unknown]
  - Accidental exposure to product [Unknown]
  - Product solubility abnormal [Unknown]
  - Product quality issue [Unknown]
